FAERS Safety Report 8338783-0 (Version None)
Quarter: 2012Q2

REPORT INFORMATION
  Report Type: 
  Country: None (occurrence: None)
  Receive Date: 20120504
  Receipt Date: 20120501
  Transmission Date: 20120825
  Serious: Yes (Hospitalization)
  Sender: FDA-Public Use
  Company Number: CA-ROCHE-1064952

PATIENT
  Sex: Male
  Weight: 94.886 kg

DRUGS (9)
  1. ACTEMRA [Suspect]
     Indication: RHEUMATOID ARTHRITIS
     Route: 042
     Dates: start: 20120404
  2. METOPROLOL TARTRATE [Concomitant]
  3. LIPITOR [Concomitant]
  4. ELATROL [Concomitant]
  5. MICARDIS [Concomitant]
  6. INSULIN [Concomitant]
     Indication: DIABETES MELLITUS
  7. ASPIRIN [Concomitant]
  8. RABEPRAZOLE SODIUM [Concomitant]
  9. PIOGLITAZONE [Concomitant]

REACTIONS (3)
  - BLOOD GLUCOSE INCREASED [None]
  - BLINDNESS [None]
  - PAIN [None]
